FAERS Safety Report 6236472-X (Version None)
Quarter: 2009Q2

REPORT INFORMATION
  Report Type: 
  Country: None (occurrence: None)
  Receive Date: 20090619
  Receipt Date: 20090609
  Transmission Date: 20091009
  Serious: Yes (Other)
  Sender: FDA-Public Use
  Company Number: US-PFIZER INC-2009227636

PATIENT
  Sex: Female
  Weight: 77.098 kg

DRUGS (14)
  1. ZOLOFT [Suspect]
     Indication: STRESS
     Route: 048
     Dates: start: 20060101, end: 20090501
  2. FOSAMAX [Concomitant]
     Dosage: UNK
  3. OS-CAL [Concomitant]
     Dosage: UNK
  4. PREVACID [Concomitant]
     Dosage: UNK
  5. TOPROL-XL [Concomitant]
     Dosage: UNK
  6. PLAVIX [Concomitant]
     Dosage: UNK
  7. DITROPAN XL [Concomitant]
     Dosage: UNK
  8. AMBIEN [Concomitant]
     Dosage: UNK
  9. LYRICA [Concomitant]
     Dosage: UNK
  10. BROMFENAC [Concomitant]
     Dosage: UNK
  11. HYPOTEARS DDPF [Concomitant]
     Dosage: UNK
  12. TRAVATAN [Concomitant]
     Dosage: UNK
  13. TYLENOL (CAPLET) [Concomitant]
     Dosage: UNK
  14. VITAMINS [Concomitant]
     Dosage: UNK

REACTIONS (3)
  - NEOPLASM MALIGNANT [None]
  - NERVOUSNESS [None]
  - WHITE BLOOD CELL COUNT DECREASED [None]
